FAERS Safety Report 7038347-5 (Version None)
Quarter: 2010Q4

REPORT INFORMATION
  Report Type: 
  Country: None (occurrence: None)
  Receive Date: 20101011
  Receipt Date: 20091118
  Transmission Date: 20110411
  Serious: No
  Sender: FDA-Public Use
  Company Number: US-PFIZER INC-2009283917

PATIENT
  Sex: Female

DRUGS (1)
  1. NEURONTIN [Suspect]
     Indication: MENTAL DISORDER
     Dosage: 3600 MG, UNK

REACTIONS (2)
  - DRUG EFFECT DECREASED [None]
  - STRESS [None]
